FAERS Safety Report 5903231-4 (Version None)
Quarter: 2008Q3

REPORT INFORMATION
  Report Type: 
  Country: None (occurrence: None)
  Receive Date: 20080926
  Receipt Date: 20080918
  Transmission Date: 20090109
  Serious: Yes (Hospitalization)
  Sender: FDA-Public Use
  Company Number: PAR_02346_2008

PATIENT
  Sex: Male
  Weight: 94 kg

DRUGS (12)
  1. HYDRALAZINE HYDROCHLORIDE [Suspect]
     Indication: DRUG USE FOR UNKNOWN INDICATION
     Dosage: (25 MG TID)
  2. ACETYLSALICYLIC ACID SRT [Concomitant]
  3. SUTENT [Suspect]
     Indication: RENAL CELL CARCINOMA
     Dosage: (50 MG QD [HELD FOR 2 WEEKS AFTER EVERY 4 WEEKS] ORAL)
     Route: 048
     Dates: start: 20080529
  4. NEXAVAR [Suspect]
     Indication: RENAL CELL CARCINOMA
     Dosage: (400 MG BID ORAL)
     Route: 048
     Dates: start: 20080529
  5. HUMALOG [Suspect]
     Indication: DRUG USE FOR UNKNOWN INDICATION
     Dosage: (25 MG BID[25 MG IN AM; W5 MG IN PM] 50/50)
  6. NOVOLOG (NOT SPECIFIED) [Concomitant]
     Indication: DRUG USE FOR UNKNOWN INDICATION
     Dosage: 100 DF TID SUBCUTANEOUS
     Route: 058
  7. ACCUPRIL [Suspect]
     Indication: DRUG USE FOR UNKNOWN INDICATION
     Dosage: 40 MG QD
  8. COREG [Suspect]
     Indication: DRUG USE FOR UNKNOWN INDICATION
     Dosage: 12.5 MG QD
  9. LEXAPRO [Suspect]
     Indication: DRUG USE FOR UNKNOWN INDICATION
     Dosage: 20 MG QD
  10. PRAVACHOL [Suspect]
     Indication: DRUG USE FOR UNKNOWN INDICATION
     Dosage: 40 MG QD
  11. OMACOR [Suspect]
     Dosage: 1000 MG QID
  12. ACETYLSALICYLIC ACID SRT [Concomitant]

REACTIONS (5)
  - BLOOD GLUCOSE INCREASED [None]
  - BRADYCARDIA [None]
  - HYPOGLYCAEMIA [None]
  - SYNCOPE [None]
  - UNRESPONSIVE TO STIMULI [None]
